FAERS Safety Report 17115911 (Version 1)
Quarter: 2019Q4

REPORT INFORMATION
  Report Type: Spontaneous
  Country: US (occurrence: US)
  Receive Date: 20191205
  Receipt Date: 20191205
  Transmission Date: 20200122
  Serious: No
  Sender: FDA-Public Use
  Company Number: US-PFIZER INC-2019525114

PATIENT
  Age: 66 Year
  Sex: Male
  Weight: 72.56 kg

DRUGS (1)
  1. CHANTIX [Suspect]
     Active Substance: VARENICLINE TARTRATE
     Indication: SMOKING CESSATION THERAPY
     Dosage: 1 MG, 2X/DAY (1MG IN THE MORNING AND 1MG IN THE EVENING.)
     Dates: start: 201911

REACTIONS (3)
  - Weight increased [Unknown]
  - Intentional product misuse [Unknown]
  - Drug ineffective [Unknown]
